FAERS Safety Report 7450669-2 (Version None)
Quarter: 2011Q2

REPORT INFORMATION
  Report Type: 
  Country: None (occurrence: None)
  Receive Date: 20110429
  Receipt Date: 20110429
  Transmission Date: 20111010
  Serious: Yes (Hospitalization)
  Sender: FDA-Public Use
  Company Number: None

PATIENT
  Age: 64 Year
  Sex: Female
  Weight: 117.9352 kg

DRUGS (3)
  1. LISINOPRIL [Suspect]
     Indication: BLOOD PRESSURE
     Dosage: 1 TABLET TWICE A DAY 80 TABLET
     Dates: start: 20050101, end: 20070101
  2. METFORMIN HCL [Suspect]
     Indication: DIABETES MELLITUS
     Dosage: 2 TIMES A DAY FOR DIABETES  TABLET 60
     Dates: start: 20050101, end: 20070101
  3. METOPROLOL TARTRATE [Suspect]
     Indication: BLOOD PRESSURE
     Dosage: 1 TABLET EVERY DAY 60 TABLET
     Dates: start: 20050101, end: 20070101

REACTIONS (8)
  - SWOLLEN TONGUE [None]
  - DIARRHOEA [None]
  - SWELLING [None]
  - PHARYNGEAL OEDEMA [None]
  - URTICARIA [None]
  - RASH [None]
  - PRURITUS [None]
  - SWELLING FACE [None]
